FAERS Safety Report 7313414-7 (Version None)
Quarter: 2011Q1

REPORT INFORMATION
  Report Type: 
  Country: None (occurrence: None)
  Receive Date: 20110225
  Receipt Date: 20110215
  Transmission Date: 20110831
  Serious: No
  Sender: FDA-Public Use
  Company Number: US-PFIZER INC-2010153660

PATIENT
  Age: 16 Year
  Sex: Male

DRUGS (8)
  1. CAMPTOSAR [Suspect]
     Indication: LYMPHOMA
     Dosage: 100 MG/M2, 1X/DAY, DAY 2
     Route: 042
  2. FILGRASTIM [Concomitant]
     Dosage: UNK
  3. TEMODAR [Concomitant]
     Dosage: UNK
  4. CEFEPIME [Concomitant]
     Dosage: UNK
  5. MEROPENEM [Concomitant]
     Dosage: UNK
  6. BACTRIM [Concomitant]
     Dosage: UNK
  7. VANCOMYCIN [Concomitant]
     Dosage: UNK
  8. TRIMETHOPRIM [Concomitant]
     Dosage: UNK

REACTIONS (1)
  - EOSINOPHILIA [None]
